FAERS Safety Report 6605187-8 (Version None)
Quarter: 2010Q1

REPORT INFORMATION
  Report Type: 
  Country: None (occurrence: None)
  Receive Date: 20100226
  Receipt Date: 20100212
  Transmission Date: 20100710
  Serious: Yes (Hospitalization, Other)
  Sender: FDA-Public Use
  Company Number: NL-AMGEN-US392094

PATIENT
  Age: 49 Year
  Sex: Female

DRUGS (10)
  1. ENBREL [Suspect]
     Indication: RHEUMATOID ARTHRITIS
     Route: 058
     Dates: start: 20020101, end: 20091201
  2. METHOTREXATE [Suspect]
     Indication: RHEUMATOID ARTHRITIS
     Dosage: UNK
     Route: 058
     Dates: start: 20090101, end: 20090101
  3. IMURAN [Concomitant]
     Indication: RHEUMATOID ARTHRITIS
     Dosage: UNK
     Dates: start: 20060101, end: 20090101
  4. IMURAN [Concomitant]
     Dosage: UNK
     Dates: start: 20090101
  5. MOVICOX [Concomitant]
  6. FOSAMAX [Concomitant]
     Dosage: 70 MG
  7. CALCICHEW [Concomitant]
  8. PANTOZOL [Concomitant]
     Dosage: 40 MG
  9. PREDNISONE [Concomitant]
     Dosage: 5 MG
  10. CODEINE PHOSPHATE AND ACETAMINOPHEN [Concomitant]

REACTIONS (8)
  - ADVERSE EVENT [None]
  - DIARRHOEA [None]
  - DRUG INEFFECTIVE [None]
  - ELBOW OPERATION [None]
  - ENDOMETRIAL CANCER STAGE I [None]
  - KNEE ARTHROPLASTY [None]
  - NAUSEA [None]
  - URINARY TRACT INFECTION [None]
